FAERS Safety Report 4408894-0 (Version None)
Quarter: 2004Q3

REPORT INFORMATION
  Report Type: 
  Country: None (occurrence: None)
  Receive Date: 20040727
  Receipt Date: 20040714
  Transmission Date: 20050211
  Serious: Yes (Death, Other)
  Sender: FDA-Public Use
  Company Number: PHBS2004JP09439

PATIENT
  Age: 59 Year
  Sex: Female

DRUGS (3)
  1. CYCLOSPORINE [Suspect]
     Indication: BONE MARROW TRANSPLANT
     Route: 048
  2. FK 506 [Suspect]
  3. PREDNISOLONE [Suspect]

REACTIONS (14)
  - BLINDNESS TRANSIENT [None]
  - BLOOD CREATININE INCREASED [None]
  - CONVULSION [None]
  - DIARRHOEA [None]
  - DISORIENTATION [None]
  - ENCEPHALOPATHY [None]
  - GRAFT VERSUS HOST DISEASE [None]
  - HEMIPARESIS [None]
  - HEPATIC FAILURE [None]
  - HYPERTENSION [None]
  - LIVER DISORDER [None]
  - RENAL IMPAIRMENT [None]
  - SUBARACHNOID HAEMORRHAGE [None]
  - VISUAL DISTURBANCE [None]
